FAERS Safety Report 23841041 (Version 2)
Quarter: 2024Q3

REPORT INFORMATION
  Report Type: Spontaneous
  Country: CN (occurrence: CN)
  Receive Date: 20240510
  Receipt Date: 20240923
  Transmission Date: 20241016
  Serious: No
  Sender: ROCHE
  Company Number: CN-ROCHE-3481514

PATIENT
  Age: 54 Year
  Sex: Female

DRUGS (13)
  1. TRASTUZUMAB [Suspect]
     Active Substance: TRASTUZUMAB
     Indication: HER2 positive breast cancer
     Route: 042
     Dates: start: 20200901
  2. TRASTUZUMAB [Suspect]
     Active Substance: TRASTUZUMAB
     Dosage: D1
     Route: 042
  3. PERTUZUMAB [Suspect]
     Active Substance: PERTUZUMAB
     Indication: HER2 positive breast cancer
     Route: 042
  4. PERTUZUMAB [Suspect]
     Active Substance: PERTUZUMAB
     Dosage: D1
     Route: 042
  5. PACLITAXEL [Suspect]
     Active Substance: PACLITAXEL
     Indication: HER2 positive breast cancer
     Dosage: D1 D8 IVGTT
     Route: 042
     Dates: start: 20200714
  6. PACLITAXEL [Suspect]
     Active Substance: PACLITAXEL
     Dosage: D1, D8 IVGTT
     Route: 042
     Dates: start: 20200901
  7. CARBOPLATIN [Suspect]
     Active Substance: CARBOPLATIN
     Indication: HER2 positive breast cancer
     Dosage: D1 IVGTT
     Route: 042
     Dates: start: 20200901
  8. CAPECITABINE [Suspect]
     Active Substance: CAPECITABINE
     Indication: HER2 positive breast cancer
     Dosage: D1-D14
     Route: 048
     Dates: start: 20210927
  9. PYROTINIB [Suspect]
     Active Substance: PYROTINIB
     Indication: HER2 positive breast cancer
     Route: 048
     Dates: start: 20211227
  10. INVESTIGATIONAL PRODUCT [Suspect]
     Active Substance: INVESTIGATIONAL PRODUCT
     Indication: HER2 positive breast cancer
     Dosage: IVGTT D1
     Route: 042
     Dates: start: 20220318
  11. VINORELBINE [Suspect]
     Active Substance: VINORELBINE TARTRATE
     Indication: HER2 positive breast cancer
     Dosage: IVGTT D1, D5
     Route: 042
     Dates: start: 20220318
  12. CISPLATIN [Suspect]
     Active Substance: CISPLATIN
     Indication: HER2 positive breast cancer
     Dosage: IVGTT D1
     Route: 042
     Dates: start: 20220318
  13. FLUOROURACIL [Concomitant]
     Active Substance: FLUOROURACIL
     Indication: HER2 positive breast cancer
     Dosage: D1 IVGTT, WITH 21 DAYS PER CYCLE
     Route: 042

REACTIONS (1)
  - Disease progression [Recovering/Resolving]
